FAERS Safety Report 20176569 (Version 1)
Quarter: 2021Q4

REPORT INFORMATION
  Report Type: Spontaneous
  Country: US (occurrence: None)
  Receive Date: 20211210
  Receipt Date: 20211210
  Transmission Date: 20220304
  Serious: Yes (Hospitalization, Other)
  Sender: FDA-Public Use
  Company Number: None

PATIENT
  Age: 66 Year
  Sex: Male
  Weight: 122 kg

DRUGS (10)
  1. WARFARIN [Suspect]
     Active Substance: WARFARIN
     Indication: Atrial fibrillation
     Dosage: FREQUENCY : DAILY;?
     Route: 048
     Dates: start: 20151030
  2. LISINOPRIL [Concomitant]
     Active Substance: LISINOPRIL
  3. Torsem id e [Concomitant]
  4. METFORMIN [Concomitant]
     Active Substance: METFORMIN HYDROCHLORIDE
  5. ATENOLOL [Concomitant]
     Active Substance: ATENOLOL
  6. aton/astati n [Concomitant]
  7. OMEPRAZOLE [Concomitant]
     Active Substance: OMEPRAZOLE
  8. g abapentin [Concomitant]
  9. AMITRIPTYLINE [Concomitant]
     Active Substance: AMITRIPTYLINE
  10. n aproxen [Concomitant]

REACTIONS (7)
  - Oedema peripheral [None]
  - Blood urine present [None]
  - Haemoglobin decreased [None]
  - Acute kidney injury [None]
  - Hypophagia [None]
  - Infection [None]
  - Anticoagulation drug level above therapeutic [None]

NARRATIVE: CASE EVENT DATE: 20211127
